FAERS Safety Report 12928730 (Version 4)
Quarter: 2017Q4

REPORT INFORMATION
  Report Type: Spontaneous
  Country: US (occurrence: US)
  Receive Date: 20161110
  Receipt Date: 20171225
  Transmission Date: 20180320
  Serious: Yes (Hospitalization)
  Sender: FDA-Public Use
  Company Number: US-AUROBINDO-AUR-APL-2016-13779

PATIENT
  Age: 2 Year
  Sex: Female

DRUGS (18)
  1. ACYCLOVIR                          /00587301/ [Concomitant]
     Active Substance: ACYCLOVIR
     Indication: PROPHYLAXIS
     Dosage: UNK
     Route: 065
     Dates: start: 2015
  2. LORAZEPAM. [Concomitant]
     Active Substance: LORAZEPAM
     Indication: PRODUCT USED FOR UNKNOWN INDICATION
     Dosage: ()AS NECESSARY
     Dates: start: 2015
  3. OMEPRAZOLE. [Concomitant]
     Active Substance: OMEPRAZOLE
     Indication: PRODUCT USED FOR UNKNOWN INDICATION
     Dosage: ()
     Dates: start: 2015
  4. MELATONIN [Concomitant]
     Active Substance: MELATONIN
     Indication: PRODUCT USED FOR UNKNOWN INDICATION
     Route: 065
  5. MORPHINE                           /00036302/ [Concomitant]
     Active Substance: MORPHINE
     Dosage: UNK
     Dates: start: 2015
  6. LEVOFLOXACIN. [Suspect]
     Active Substance: LEVOFLOXACIN
     Indication: PROPHYLAXIS
     Dosage: ()
     Route: 065
     Dates: start: 2015
  7. OXYCODONE [Concomitant]
     Active Substance: OXYCODONE
     Indication: PRODUCT USED FOR UNKNOWN INDICATION
     Dosage: ()AS NECESSARY
     Dates: start: 2015
  8. FLUCONAZOLE. [Concomitant]
     Active Substance: FLUCONAZOLE
     Indication: PROPHYLAXIS
     Dosage: ()
     Dates: start: 2015
  9. CHOLECALCIFEROL [Concomitant]
     Active Substance: CHOLECALCIFEROL
     Indication: PRODUCT USED FOR UNKNOWN INDICATION
     Dates: start: 2015
  10. MORPHINE [Concomitant]
     Active Substance: MORPHINE
     Indication: PRODUCT USED FOR UNKNOWN INDICATION
     Dosage: ()AS NECESSARY
     Route: 065
     Dates: start: 2015
  11. BUSULFAN. [Concomitant]
     Active Substance: BUSULFAN
     Indication: PRODUCT USED FOR UNKNOWN INDICATION
     Dosage: WITH EVERY 6-HOUR BUSULFAN ADMINISTRATION () ; CYCLICAL
     Route: 065
     Dates: start: 2015
  12. COLECALCIFEROL [Concomitant]
     Active Substance: CHOLECALCIFEROL
     Indication: PRODUCT USED FOR UNKNOWN INDICATION
     Dosage: ()
     Route: 065
     Dates: start: 2015
  13. APREPITANT. [Concomitant]
     Active Substance: APREPITANT
     Indication: PRODUCT USED FOR UNKNOWN INDICATION
     Dosage: ()AS NECESSARY
     Dates: start: 2015
  14. CYPROHEPTADINE. [Concomitant]
     Active Substance: CYPROHEPTADINE
     Indication: PRODUCT USED FOR UNKNOWN INDICATION
     Dosage: ()
     Dates: start: 2015
  15. URSODIOL. [Concomitant]
     Active Substance: URSODIOL
     Indication: PRODUCT USED FOR UNKNOWN INDICATION
     Dates: start: 2015
  16. ONDANSETRON [Concomitant]
     Active Substance: ONDANSETRON
     Indication: PRODUCT USED FOR UNKNOWN INDICATION
     Dosage: ()AS NECESSARY
     Dates: start: 2015
  17. ACICLOVIR [Concomitant]
     Active Substance: ACYCLOVIR
     Indication: PROPHYLAXIS
     Dosage: ()
     Route: 065
     Dates: start: 2015
  18. URSODEOXYCHOLIC ACID [Concomitant]
     Active Substance: URSODIOL
     Indication: PRODUCT USED FOR UNKNOWN INDICATION
     Dosage: ()
     Route: 065
     Dates: start: 2015

REACTIONS (14)
  - Psychomotor hyperactivity [Recovered/Resolved]
  - Delirium [Recovered/Resolved]
  - Sleep disorder [Recovered/Resolved]
  - Aggression [Recovered/Resolved]
  - Mucosal inflammation [Recovered/Resolved]
  - Agitation [Recovered/Resolved]
  - Hallucination, visual [Recovered/Resolved]
  - Affect lability [Recovered/Resolved]
  - Hallucination, tactile [Recovered/Resolved]
  - Disorientation [Recovered/Resolved]
  - Crying [Recovered/Resolved]
  - Neurological symptom [Recovered/Resolved]
  - Abnormal behaviour [Recovered/Resolved]
  - Hallucination [Recovered/Resolved]

NARRATIVE: CASE EVENT DATE: 2015
